FAERS Safety Report 9121147 (Version 1)
Quarter: 2013Q1

REPORT INFORMATION
  Report Type: Report from Study
  Country: BE (occurrence: BE)
  Receive Date: 20130226
  Receipt Date: 20130226
  Transmission Date: 20140127
  Serious: Yes (Death)
  Sender: FDA-Public Use
  Company Number: BE-ROCHE-1194986

PATIENT
  Age: 51 Year
  Sex: Female

DRUGS (4)
  1. ZELBORAF [Suspect]
     Indication: MALIGNANT MELANOMA
     Route: 048
     Dates: start: 20130220, end: 20130221
  2. OMEPRAZOLE [Concomitant]
     Indication: DYSPEPSIA
     Route: 048
     Dates: start: 20130120, end: 20130221
  3. PARACETAMOL [Concomitant]
     Indication: PAIN
     Route: 048
     Dates: end: 20130221
  4. CONTRAMAL LP [Concomitant]
     Indication: PAIN
     Route: 048
     Dates: start: 20130220, end: 20130221

REACTIONS (1)
  - Gastrointestinal haemorrhage [Fatal]
